FAERS Safety Report 4333319-3 (Version None)
Quarter: 2004Q2

REPORT INFORMATION
  Report Type: 
  Country: None (occurrence: None)
  Receive Date: 20040405
  Receipt Date: 20040329
  Transmission Date: 20050107
  Serious: Yes (Hospitalization)
  Sender: FDA-Public Use
  Company Number: 04-03-0472

PATIENT
  Age: 46 Year
  Sex: Female

DRUGS (1)
  1. TAMOXIFEN CITRATE [Suspect]
     Indication: BREAST CANCER
     Dosage: 20MG QD ORAL
     Route: 048

REACTIONS (6)
  - CEREBRAL HAEMORRHAGE [None]
  - HEADACHE [None]
  - NAUSEA [None]
  - PARTIAL SEIZURES [None]
  - TINNITUS [None]
  - TRANSVERSE SINUS THROMBOSIS [None]
